FAERS Safety Report 17388315 (Version 1)
Quarter: 2020Q1

REPORT INFORMATION
  Report Type: Spontaneous
  Country: US (occurrence: US)
  Receive Date: 20200206
  Receipt Date: 20200206
  Transmission Date: 20200409
  Serious: No
  Sender: FDA-Public Use
  Company Number: US-ALKERMES INC.-ALK-2020-000462

PATIENT
  Age: 32 Year
  Sex: Female
  Weight: 96.6 kg

DRUGS (2)
  1. ANTIBIOTICS [Concomitant]
     Active Substance: UNSPECIFIED INGREDIENT
     Indication: PRODUCT USED FOR UNKNOWN INDICATION
     Dosage: UNK
     Route: 065
  2. VIVITROL [Suspect]
     Active Substance: NALTREXONE
     Indication: DRUG DEPENDENCE
     Dosage: 380 MG, QMO
     Route: 030
     Dates: start: 201903

REACTIONS (11)
  - Decreased appetite [Recovering/Resolving]
  - Insomnia [Recovering/Resolving]
  - Injection site pain [Recovered/Resolved]
  - Dental caries [Unknown]
  - Injection site reaction [Recovered/Resolved]
  - Tooth fracture [Unknown]
  - Therapeutic response shortened [Unknown]
  - Crying [Recovering/Resolving]
  - Drug dependence [Recovered/Resolved]
  - Emotional disorder [Recovering/Resolving]
  - Injection site induration [Recovered/Resolved]

NARRATIVE: CASE EVENT DATE: 201903
